FAERS Safety Report 16834603 (Version 1)
Quarter: 2019Q3

REPORT INFORMATION
  Report Type: Spontaneous
  Country: US (occurrence: US)
  Receive Date: 20190920
  Receipt Date: 20190920
  Transmission Date: 20191005
  Serious: Yes (Hospitalization, Disabling, Other)
  Sender: FDA-Public Use
  Company Number: US-NOVOPROD-684788

PATIENT
  Age: 33 Year
  Sex: Female

DRUGS (2)
  1. OMNITROPE [Concomitant]
     Active Substance: SOMATROPIN
     Indication: GROWTH HORMONE DEFICIENCY
     Dosage: UNK
     Route: 065
  2. TRESIBA [Suspect]
     Active Substance: INSULIN DEGLUDEC
     Indication: LATENT AUTOIMMUNE DIABETES IN ADULTS
     Dosage: 262 UNITS
     Route: 058
     Dates: start: 2016

REACTIONS (10)
  - Impaired gastric emptying [Unknown]
  - Hyperhidrosis [Unknown]
  - Intentional product use issue [Unknown]
  - Vomiting [Unknown]
  - Palpitations [Unknown]
  - Condition aggravated [Not Recovered/Not Resolved]
  - Musculoskeletal discomfort [Unknown]
  - Weight increased [Unknown]
  - Autonomic neuropathy [Not Recovered/Not Resolved]
  - Nasopharyngitis [Unknown]

NARRATIVE: CASE EVENT DATE: 2016
